FAERS Safety Report 15952805 (Version 1)
Quarter: 2019Q1

REPORT INFORMATION
  Report Type: Spontaneous
  Country: US (occurrence: US)
  Receive Date: 20190212
  Receipt Date: 20190212
  Transmission Date: 20190417
  Serious: Yes (Other)
  Sender: FDA-Public Use
  Company Number: US-PFIZER INC-2019053222

PATIENT
  Age: 78 Year
  Sex: Female
  Weight: 87.9 kg

DRUGS (14)
  1. NATEGLINIDE. [Concomitant]
     Active Substance: NATEGLINIDE
     Dosage: 120 MG, 3X/DAY (120 MG, THREE TIMES A DAY BEFORE MEAL   )
  2. METOPROLOL SUCCINATE. [Concomitant]
     Active Substance: METOPROLOL SUCCINATE
     Dosage: 25 MG, UNK
  3. LOSARTAN. [Concomitant]
     Active Substance: LOSARTAN
     Dosage: 100 MG, 1X/DAY
  4. METFORMIN [Concomitant]
     Active Substance: METFORMIN HYDROCHLORIDE
     Dosage: UNK (I TAKE HALF WITH BREAKFAST AND HALF WITH DINNER)
  5. REPATHA [Concomitant]
     Active Substance: EVOLOCUMAB
     Dosage: 140 MG, UNK (140 MG, TWICE A MONTH, EVERY 15 DAYS   )
  6. TRESIBA [Concomitant]
     Active Substance: INSULIN DEGLUDEC
     Dosage: 14 MG, UNK
  7. PRAVASTATIN SODIUM. [Concomitant]
     Active Substance: PRAVASTATIN SODIUM
     Dosage: 20 MG, 1X/DAY
  8. LYRICA [Suspect]
     Active Substance: PREGABALIN
     Indication: DIABETIC NEUROPATHY
     Dosage: UNK, TWICE A DAY
  9. LYRICA [Suspect]
     Active Substance: PREGABALIN
     Dosage: 75 MG, 3 TIMES A DAY (75 MG AND IT HAS MY NAME, TAKE ONE TABLET BY MOUTH THREE TIMES A DAY )
     Route: 048
  10. LYRICA [Suspect]
     Active Substance: PREGABALIN
     Dosage: UNK
  11. XELJANZ [Concomitant]
     Active Substance: TOFACITINIB CITRATE
     Dosage: 10 MG, 1X/DAY
     Route: 048
  12. TRESIBA [Concomitant]
     Active Substance: INSULIN DEGLUDEC
     Dosage: UNK (32 MG A DAY)
  13. METOPROLOL SUCCINATE. [Concomitant]
     Active Substance: METOPROLOL SUCCINATE
     Dosage: UNK (HALF A TABLET A DAY )
  14. TRESIBA [Concomitant]
     Active Substance: INSULIN DEGLUDEC
     Indication: NEURALGIA
     Dosage: 28 MG, UNK

REACTIONS (3)
  - Drug ineffective [Unknown]
  - Pulmonary thrombosis [Unknown]
  - Phlebitis [Unknown]
